FAERS Safety Report 19010440 (Version 1)
Quarter: 2021Q1

REPORT INFORMATION
  Report Type: Spontaneous
  Country: CR (occurrence: CR)
  Receive Date: 20210315
  Receipt Date: 20210315
  Transmission Date: 20210420
  Serious: Yes (Death)
  Sender: FDA-Public Use
  Company Number: NVSC2021CR058719

PATIENT
  Age: 75 Year
  Sex: Female

DRUGS (1)
  1. CURAM [Suspect]
     Active Substance: AMOXICILLIN\CLAVULANATE POTASSIUM
     Indication: DENTAL OPERATION
     Route: 065

REACTIONS (2)
  - Liver disorder [Fatal]
  - Jaundice [Fatal]
